FAERS Safety Report 7651256-3 (Version None)
Quarter: 2011Q3

REPORT INFORMATION
  Report Type: 
  Country: None (occurrence: None)
  Receive Date: 20110727
  Receipt Date: 20110713
  Transmission Date: 20111222
  Serious: Yes (Hospitalization)
  Sender: FDA-Public Use
  Company Number: 1000022336

PATIENT
  Age: 23 Year
  Sex: Female
  Weight: 54 kg

DRUGS (1)
  1. LEXAPRO [Suspect]
     Indication: DEPRESSION
     Dosage: 10 MG (10 MG, 1 IN 1 D), ORAL
     Route: 048
     Dates: start: 20110430, end: 20110501

REACTIONS (6)
  - LOGORRHOEA [None]
  - COMPULSIVE SHOPPING [None]
  - PSYCHOMOTOR HYPERACTIVITY [None]
  - AGGRESSION [None]
  - AFFECT LABILITY [None]
  - MANIA [None]
